FAERS Safety Report 9922970 (Version 2)
Quarter: 2014Q1

REPORT INFORMATION
  Report Type: Spontaneous
  Country: US (occurrence: US)
  Receive Date: 20140225
  Receipt Date: 20140228
  Transmission Date: 20141002
  Serious: No
  Sender: FDA-Public Use
  Company Number: US-009507513-1402USA009818

PATIENT
  Age: 51 Year
  Sex: Female

DRUGS (4)
  1. NASONEX [Suspect]
     Indication: RHINITIS ALLERGIC
     Dosage: 4 SPRAYS IN EACH NOSTRIL, QD
     Route: 045
     Dates: start: 201102
  2. SINGULAIR [Concomitant]
     Route: 048
  3. ZYRTEC [Concomitant]
  4. SUDAFED [Concomitant]

REACTIONS (2)
  - Malaise [Recovering/Resolving]
  - Drug ineffective [Recovering/Resolving]
